FAERS Safety Report 7547602-1 (Version None)
Quarter: 2011Q2

REPORT INFORMATION
  Report Type: 
  Country: None (occurrence: None)
  Receive Date: 20110614
  Receipt Date: 20110603
  Transmission Date: 20111010
  Serious: Yes (Other)
  Sender: FDA-Public Use
  Company Number: US-BAYER-2011-048442

PATIENT
  Age: 42 Year
  Sex: Male

DRUGS (1)
  1. AVELOX [Suspect]
     Dosage: 400 MG, ONCE
     Dates: start: 20110520, end: 20110520

REACTIONS (3)
  - CHEST DISCOMFORT [None]
  - HYPERSENSITIVITY [None]
  - PRURITUS [None]
